FAERS Safety Report 11622474 (Version 1)
Quarter: 2015Q4

REPORT INFORMATION
  Report Type: Spontaneous
  Country: US (occurrence: None)
  Receive Date: 20151009
  Receipt Date: 20151009
  Transmission Date: 20160304
  Serious: No
  Sender: FDA-Public Use
  Company Number: None

PATIENT
  Age: 61 Year
  Sex: Female
  Weight: 67.13 kg

DRUGS (13)
  1. LEXAPRO [Concomitant]
     Active Substance: ESCITALOPRAM OXALATE
  2. VITAMINS C [Concomitant]
  3. ESCITALOPRAM [Suspect]
     Active Substance: ESCITALOPRAM OXALATE
     Indication: ANXIETY
     Route: 048
     Dates: start: 20150912, end: 20150923
  4. ESCITALOPRAM [Suspect]
     Active Substance: ESCITALOPRAM OXALATE
     Indication: DEPRESSION
     Route: 048
     Dates: start: 20150912, end: 20150923
  5. ZN [Concomitant]
  6. VITAMIN B [Concomitant]
     Active Substance: VITAMIN B
  7. SNOREPIN NOSE INSERT [Concomitant]
  8. CPAP [Concomitant]
     Active Substance: DEVICE
  9. MG [Concomitant]
     Active Substance: MAGNESIUM
  10. K [Concomitant]
  11. CA [Concomitant]
  12. VITAMIN D [Concomitant]
     Active Substance: CHOLECALCIFEROL
  13. NAPROXEN SODIUM. [Concomitant]
     Active Substance: NAPROXEN SODIUM

REACTIONS (8)
  - Confusional state [None]
  - Product quality issue [None]
  - Drug ineffective [None]
  - Anxiety [None]
  - Withdrawal syndrome [None]
  - Tremor [None]
  - Myalgia [None]
  - Coordination abnormal [None]

NARRATIVE: CASE EVENT DATE: 20150916
